FAERS Safety Report 7987572 (Version 3)
Quarter: 2013Q3

REPORT INFORMATION
  Report Type: Spontaneous
  Country: BE (occurrence: BE)
  Receive Date: 20110613
  Receipt Date: 20130829
  Transmission Date: 20140515
  Serious: Yes (Other)
  Sender: FDA-Public Use
  Company Number: BE-GENZYME-FABR-1001966

PATIENT
  Sex: Male
  Weight: 51 kg

DRUGS (7)
  1. FABRAZYME [Suspect]
     Indication: FABRY^S DISEASE
     Dosage: 0.7 MG/KG, Q4W
     Route: 042
     Dates: start: 20050519
  2. FABRAZYME [Suspect]
     Dosage: 2 MG/KG, Q4W
     Route: 042
  3. PARACETAMOL [Concomitant]
     Indication: PRODUCT USED FOR UNKNOWN INDICATION
     Dosage: UNK
     Route: 065
  4. CALCIUM [Concomitant]
     Indication: PRODUCT USED FOR UNKNOWN INDICATION
     Dosage: UNK
     Route: 065
  5. VITAMIN D [Concomitant]
     Indication: PRODUCT USED FOR UNKNOWN INDICATION
     Dosage: UNK
     Route: 065
  6. BECLOMETASONE [Concomitant]
     Indication: PRODUCT USED FOR UNKNOWN INDICATION
     Dosage: UNK
     Route: 065
  7. DUOVENT [Concomitant]
     Indication: PRODUCT USED FOR UNKNOWN INDICATION
     Dosage: UNK
     Route: 065

REACTIONS (1)
  - Renal failure [Not Recovered/Not Resolved]
